FAERS Safety Report 18683869 (Version 1)
Quarter: 2020Q4

REPORT INFORMATION
  Report Type: Report from Study
  Country: US (occurrence: US)
  Receive Date: 20201230
  Receipt Date: 20201230
  Transmission Date: 20210114
  Serious: Yes (Other)
  Sender: FDA-Public Use
  Company Number: US-MYLANLABS-2020M1106057

PATIENT

DRUGS (1)
  1. MIDAZOLAM. [Suspect]
     Active Substance: MIDAZOLAM
     Indication: PRODUCT USED FOR UNKNOWN INDICATION
     Dosage: 5 MILLIGRAM ADMINISTERED ON STUDY DAY 1 AND DAY 8 IN THE FORM OF SYRUP (2.5ML OF 2 MG/ML)
     Route: 048

REACTIONS (2)
  - Electrocardiogram PR prolongation [Recovered/Resolved]
  - Drug-induced liver injury [Recovered/Resolved]
